FAERS Safety Report 4291435-9 (Version None)
Quarter: 2004Q1

REPORT INFORMATION
  Report Type: 
  Country: None (occurrence: None)
  Receive Date: 20040210
  Receipt Date: 20040210
  Transmission Date: 20041129
  Serious: Yes (Disabling)
  Sender: FDA-Public Use
  Company Number: None

PATIENT
  Age: 52 Year
  Sex: Male
  Weight: 92.9874 kg

DRUGS (1)
  1. ZYCAM GEL [Suspect]
     Dosage: TWICE A DAY
     Dates: start: 20030115, end: 20030201

REACTIONS (2)
  - AGEUSIA [None]
  - ANOSMIA [None]
